FAERS Safety Report 5365183-8 (Version None)
Quarter: 2007Q2

REPORT INFORMATION
  Report Type: 
  Country: None (occurrence: None)
  Receive Date: 20070530
  Receipt Date: 20070124
  Transmission Date: 20071010
  Serious: No
  Sender: FDA-Public Use
  Company Number: 2007PV028944

PATIENT
  Age: 60 Year
  Sex: Female
  Weight: 96.1626 kg

DRUGS (6)
  1. BYETTA [Suspect]
     Indication: DIABETES MELLITUS NON-INSULIN-DEPENDENT
     Dosage: 10 MCG;BID;SC ;5 MCG;BID;SC ; 10 MCG;BID;SC 5 MCG;BID;SC
     Route: 058
     Dates: start: 20060827, end: 20060901
  2. BYETTA [Suspect]
     Indication: DIABETES MELLITUS NON-INSULIN-DEPENDENT
     Dosage: 10 MCG;BID;SC ;5 MCG;BID;SC ; 10 MCG;BID;SC 5 MCG;BID;SC
     Route: 058
     Dates: start: 20060901, end: 20061001
  3. BYETTA [Suspect]
     Indication: DIABETES MELLITUS NON-INSULIN-DEPENDENT
     Dosage: 10 MCG;BID;SC ;5 MCG;BID;SC ; 10 MCG;BID;SC 5 MCG;BID;SC
     Route: 058
     Dates: start: 20061001, end: 20070117
  4. BYETTA [Suspect]
     Indication: DIABETES MELLITUS NON-INSULIN-DEPENDENT
     Dosage: 10 MCG;BID;SC ;5 MCG;BID;SC ; 10 MCG;BID;SC 5 MCG;BID;SC
     Route: 058
     Dates: start: 20070118
  5. METFORMIN HCL [Concomitant]
  6. GLYBURIDE [Concomitant]

REACTIONS (11)
  - BLOOD GLUCOSE INCREASED [None]
  - DECREASED APPETITE [None]
  - FLANK PAIN [None]
  - GLUCOSE URINE PRESENT [None]
  - HUNGER [None]
  - INJECTION SITE BRUISING [None]
  - INJECTION SITE PAIN [None]
  - NAUSEA [None]
  - POLLAKIURIA [None]
  - VOMITING [None]
  - WEIGHT DECREASED [None]
